FAERS Safety Report 4449578-2 (Version None)
Quarter: 2004Q3

REPORT INFORMATION
  Report Type: 
  Country: None (occurrence: None)
  Receive Date: 20040913
  Receipt Date: 20040906
  Transmission Date: 20050211
  Serious: Yes (Death, Life-Threatening)
  Sender: FDA-Public Use
  Company Number: 2004-119989-NL

PATIENT
  Age: 77 Year
  Sex: Male

DRUGS (6)
  1. DANAPAROID SODIUM [Suspect]
     Indication: DISSEMINATED INTRAVASCULAR COAGULATION
     Dosage: 1250 ANTI_XA  INTRAVENOUS (NOS)
     Route: 042
     Dates: start: 20030819, end: 20030821
  2. SIVELESTAT [Concomitant]
  3. METHYLPREDNISOLONE SODIUM SUCCINATE [Concomitant]
  4. MEROPENEM [Concomitant]
  5. CLINDAMYCIN HYDROCHLORIDE [Concomitant]
  6. NAFAMOSTAT MESILATE [Concomitant]

REACTIONS (3)
  - HEPATIC FUNCTION ABNORMAL [None]
  - RENAL IMPAIRMENT [None]
  - THERAPY NON-RESPONDER [None]
